FAERS Safety Report 5761991-X (Version None)
Quarter: 2008Q2

REPORT INFORMATION
  Report Type: 
  Country: None (occurrence: None)
  Receive Date: 20080603
  Receipt Date: 20080520
  Transmission Date: 20081010
  Serious: Yes (Disabling)
  Sender: FDA-Public Use
  Company Number: DSJ-2008-05178

PATIENT
  Age: 72 Year
  Sex: Female

DRUGS (5)
  1. OLMESARTAN MEDOXOMIL [Suspect]
     Indication: HYPERTENSION
     Dosage: 10 MG, PER ORAL; 20 MG, PER ORAL
     Route: 048
     Dates: end: 20071110
  2. OLMESARTAN MEDOXOMIL [Suspect]
     Indication: HYPERTENSION
     Dosage: 10 MG, PER ORAL; 20 MG, PER ORAL
     Route: 048
     Dates: start: 20071111, end: 20080213
  3. LIVALO [Concomitant]
  4. METHYCOBAL (MECOBALAMIN) (MECOBALAMIN) [Concomitant]
  5. METFORMIN HYDROCHLORIDE [Concomitant]

REACTIONS (8)
  - BLOOD PRESSURE INADEQUATELY CONTROLLED [None]
  - DIZZINESS [None]
  - MALAISE [None]
  - NEPHROPATHY [None]
  - OEDEMA [None]
  - PRURITUS [None]
  - SUPRAVENTRICULAR TACHYCARDIA [None]
  - SWELLING [None]
